FAERS Safety Report 11870509 (Version 1)
Quarter: 2015Q4

REPORT INFORMATION
  Report Type: Spontaneous
  Country: US (occurrence: US)
  Receive Date: 20151228
  Receipt Date: 20151228
  Transmission Date: 20160305
  Serious: No
  Sender: FDA-Public Use
  Company Number: US-SA-2015SA096972

PATIENT
  Sex: Female

DRUGS (5)
  1. FUROSEMIDE. [Concomitant]
     Active Substance: FUROSEMIDE
     Dosage: STAGE?III KIDNEY FAILURE
  2. PLAVIX [Suspect]
     Active Substance: CLOPIDOGREL BISULFATE
     Indication: CARDIAC FAILURE
     Route: 048
     Dates: start: 201504
  3. IMDUR [Concomitant]
     Active Substance: ISOSORBIDE MONONITRATE
  4. CLOPIDOGREL BISULFATE. [Concomitant]
     Active Substance: CLOPIDOGREL BISULFATE
  5. COREG [Concomitant]
     Active Substance: CARVEDILOL

REACTIONS (5)
  - Ocular hyperaemia [Unknown]
  - Skin haemorrhage [Unknown]
  - Pigmentation disorder [Unknown]
  - Visual impairment [Unknown]
  - Vision blurred [Unknown]
